FAERS Safety Report 10133662 (Version 1)
Quarter: 2014Q2

REPORT INFORMATION
  Report Type: Spontaneous
  Country: FR (occurrence: FR)
  Receive Date: 20140428
  Receipt Date: 20140428
  Transmission Date: 20141212
  Serious: Yes (Hospitalization)
  Sender: FDA-Public Use
  Company Number: FR-TEVA-478071ISR

PATIENT
  Age: 51 Year
  Sex: Female

DRUGS (7)
  1. FLUOROURACIL TEVA [Suspect]
     Indication: COLON CANCER
     Dosage: 114.2857 MG/M2 DAILY;
     Route: 041
     Dates: start: 20140220, end: 20140320
  2. OXALIPLATIN TEVA [Suspect]
     Indication: COLON CANCER
     Dosage: 6.0714 MG/M2 DAILY;
     Route: 013
     Dates: start: 20140220, end: 20140320
  3. ERBITUX [Suspect]
     Indication: COLON CANCER
     Dosage: 35.7143 MG/M2 DAILY;
     Route: 042
     Dates: start: 20140220
  4. SOLUMEDROL [Concomitant]
  5. ZOPHREN [Concomitant]
  6. XYZALL [Concomitant]
  7. FOLINIC ACID [Concomitant]
     Dosage: FOLFOX PROTOCOL

REACTIONS (2)
  - Pyrexia [Recovered/Resolved]
  - Chills [Recovered/Resolved]
